FAERS Safety Report 6511391-X (Version None)
Quarter: 2009Q4

REPORT INFORMATION
  Report Type: 
  Country: None (occurrence: None)
  Receive Date: 20091222
  Receipt Date: 20090310
  Transmission Date: 20100525
  Serious: Yes (Disabling)
  Sender: FDA-Public Use
  Company Number: US-ASTRAZENECA-2009UW06312

PATIENT
  Age: 29735 Day
  Sex: Female
  Weight: 77.6 kg

DRUGS (6)
  1. CRESTOR [Suspect]
     Route: 048
     Dates: start: 20090306
  2. MICARDIS [Concomitant]
     Indication: HYPERTENSION
  3. AVELOX [Concomitant]
     Indication: SINUSITIS
  4. PLAVIX [Concomitant]
     Indication: HYPERTENSION
  5. THYROID MEDICATION [Concomitant]
     Indication: HYPOTHYROIDISM
  6. HYPERTENSION MEDICATION [Concomitant]
     Indication: HYPERTENSION

REACTIONS (3)
  - DYSPNOEA [None]
  - HEADACHE [None]
  - MUSCULAR WEAKNESS [None]
